FAERS Safety Report 8274993-9 (Version None)
Quarter: 2012Q2

REPORT INFORMATION
  Report Type: 
  Country: None (occurrence: None)
  Receive Date: 20120411
  Receipt Date: 20120402
  Transmission Date: 20120825
  Serious: Yes (Death, Hospitalization, Other)
  Sender: FDA-Public Use
  Company Number: FR-ROCHE-1057516

PATIENT
  Sex: Female

DRUGS (8)
  1. XOLAIR [Suspect]
     Route: 058
     Dates: start: 20120101
  2. PREDNISOLONE [Suspect]
     Indication: PRODUCT USED FOR UNKNOWN INDICATION
     Dates: start: 20120210
  3. BRICANYL [Suspect]
     Indication: PRODUCT USED FOR UNKNOWN INDICATION
     Dosage: DOSE: 0.5 MG/ML
     Dates: start: 20120210
  4. PULMICORT [Concomitant]
  5. VENTOLIN [Suspect]
     Indication: PRODUCT USED FOR UNKNOWN INDICATION
     Dates: start: 20120210
  6. DESLORATADINE [Concomitant]
  7. XOLAIR [Suspect]
     Indication: ASTHMA
     Route: 058
  8. SINGULAIR [Concomitant]

REACTIONS (6)
  - ANXIETY [None]
  - CYANOSIS [None]
  - DRUG INEFFECTIVE [None]
  - CARDIO-RESPIRATORY ARREST [None]
  - RESPIRATORY DISORDER [None]
  - ASTHMA [None]
